FAERS Safety Report 8573522-X (Version None)
Quarter: 2012Q3

REPORT INFORMATION
  Report Type: 
  Country: None (occurrence: None)
  Receive Date: 20120806
  Receipt Date: 20120727
  Transmission Date: 20120928
  Serious: Yes (Hospitalization, Other)
  Sender: FDA-Public Use
  Company Number: JP-VERTEX PHARMACEUTICALS INC.-AE-2012-007467

PATIENT
  Age: 69 Year
  Sex: Female

DRUGS (6)
  1. PEGINTERFERON ALFA-2B [Concomitant]
     Indication: HEPATITIS C
     Route: 058
     Dates: start: 20120313, end: 20120502
  2. SELBEX [Concomitant]
     Route: 048
     Dates: start: 20120314
  3. TELAVIC (TELAPREVIR) [Suspect]
     Indication: HEPATITIS C
     Route: 048
     Dates: start: 20120313, end: 20120509
  4. ZOMIG [Concomitant]
     Route: 048
  5. RIBAVIRIN [Concomitant]
     Indication: HEPATITIS C
     Route: 048
     Dates: start: 20120313, end: 20120410
  6. RIBAVIRIN [Concomitant]
     Route: 048
     Dates: start: 20120411, end: 20120418

REACTIONS (4)
  - NAUSEA [None]
  - DECREASED APPETITE [None]
  - MALAISE [None]
  - HAEMOGLOBIN DECREASED [None]
